FAERS Safety Report 7241900-7 (Version None)
Quarter: 2011Q1

REPORT INFORMATION
  Report Type: 
  Country: None (occurrence: None)
  Receive Date: 20110124
  Receipt Date: 20110111
  Transmission Date: 20110831
  Serious: Yes (Other)
  Sender: FDA-Public Use
  Company Number: GB-PURDUE-GBR-2011-0007596

PATIENT
  Age: 39 Year
  Sex: Female
  Weight: 80 kg

DRUGS (7)
  1. GLICLAZIDE [Concomitant]
     Dosage: 30 MG, TID
  2. BUTRANS [Suspect]
     Indication: SPINAL OSTEOARTHRITIS
     Dosage: 10 MCG, Q1H
     Route: 062
     Dates: start: 20100410
  3. BENDROFLUMETHIAZIDE [Concomitant]
     Dosage: 2.5 MG, DAILY
  4. AMITRIPTYLINE [Concomitant]
     Dosage: 10 MG, DAILY
  5. METFORMIN HCL [Concomitant]
     Dosage: 500 MG, TID
  6. SERETIDE [Concomitant]
     Dosage: 1 DF, BID
     Route: 055
  7. VENTOLIN [Concomitant]
     Dosage: UNK, PRN
     Route: 055

REACTIONS (2)
  - PRURITUS [None]
  - DERMATITIS [None]
